FAERS Safety Report 22045349 (Version 1)
Quarter: 2023Q1

REPORT INFORMATION
  Report Type: Spontaneous
  Country: US (occurrence: None)
  Receive Date: 20230227
  Receipt Date: 20230227
  Transmission Date: 20230417
  Serious: Yes (Hospitalization, Disabling, Other)
  Sender: FDA-Public Use
  Company Number: None

PATIENT
  Age: 26 Year
  Sex: Female
  Weight: 61.23 kg

DRUGS (1)
  1. PARAGARD T 380A [Suspect]
     Active Substance: COPPER

REACTIONS (6)
  - Complication of device removal [None]
  - Device breakage [None]
  - Pain [None]
  - Emotional disorder [None]
  - Mental disorder [None]
  - Illness [None]

NARRATIVE: CASE EVENT DATE: 20220927
